FAERS Safety Report 11717822 (Version 1)
Quarter: 2015Q4

REPORT INFORMATION
  Report Type: Spontaneous
  Country: US (occurrence: None)
  Receive Date: 20151109
  Receipt Date: 20151109
  Transmission Date: 20160304
  Serious: Yes (Hospitalization)
  Sender: FDA-Public Use
  Company Number: None

PATIENT
  Age: 53 Year
  Sex: Female

DRUGS (2)
  1. ISONIAZID. [Suspect]
     Active Substance: ISONIAZID
     Indication: TUBERCULOSIS
     Dates: start: 20140301, end: 20140309
  2. CIPRO [Suspect]
     Active Substance: CIPROFLOXACIN HYDROCHLORIDE
     Dates: start: 20140225, end: 20140308

REACTIONS (6)
  - Hepatic encephalopathy [None]
  - Acute hepatic failure [None]
  - Drug interaction [None]
  - Hepatitis [None]
  - Drug-induced liver injury [None]
  - Hepatotoxicity [None]

NARRATIVE: CASE EVENT DATE: 20140307
